FAERS Safety Report 14015591 (Version 2)
Quarter: 2017Q4

REPORT INFORMATION
  Report Type: Other
  Country: JP (occurrence: JP)
  Receive Date: 20170927
  Receipt Date: 20171019
  Transmission Date: 20180321
  Serious: Yes (Hospitalization)
  Sender: FDA-Public Use
  Company Number: JP-ACTELION-A-CH2017-159632

PATIENT
  Age: 2 Year
  Sex: Male

DRUGS (2)
  1. TRACLEER [Suspect]
     Active Substance: BOSENTAN
     Indication: ATRIOVENTRICULAR SEPTAL DEFECT
     Route: 048
  2. TADALAFIL [Concomitant]
     Active Substance: TADALAFIL
     Indication: ATRIOVENTRICULAR SEPTAL DEFECT
     Route: 048

REACTIONS (2)
  - Cavopulmonary anastomosis [Unknown]
  - Pleural effusion [Unknown]
